FAERS Safety Report 10023160 (Version 2)
Quarter: 2018Q1

REPORT INFORMATION
  Report Type: Report from Study
  Country: US (occurrence: US)
  Receive Date: 20140320
  Receipt Date: 20180217
  Transmission Date: 20180508
  Serious: Yes (Other)
  Sender: FDA-Public Use
  Company Number: US-ROCHE-1363670

PATIENT
  Age: 9 Year
  Sex: Male
  Weight: 31.69 kg

DRUGS (4)
  1. NUTROPIN AQ [Suspect]
     Active Substance: SOMATROPIN
     Indication: SILVER-RUSSELL SYNDROME
     Route: 058
  2. QVAR [Concomitant]
     Active Substance: BECLOMETHASONE DIPROPIONATE
     Dosage: AS REQUIRED
     Route: 065
  3. NUTROPIN AQ [Suspect]
     Active Substance: SOMATROPIN
     Route: 058
  4. ALBUTEROL. [Concomitant]
     Active Substance: ALBUTEROL
     Dosage: AS REQUIRED
     Route: 065

REACTIONS (8)
  - Growth retardation [Unknown]
  - Vitamin D deficiency [Not Recovered/Not Resolved]
  - Male genital examination abnormal [Not Recovered/Not Resolved]
  - Acne [Not Recovered/Not Resolved]
  - Blood insulin increased [Unknown]
  - Insulin-like growth factor increased [Unknown]
  - Vitamin D decreased [Unknown]
  - Insulin-like growth factor increased [Unknown]

NARRATIVE: CASE EVENT DATE: 20131119
